FAERS Safety Report 4845894-0 (Version None)
Quarter: 2005Q4

REPORT INFORMATION
  Report Type: 
  Country: None (occurrence: None)
  Receive Date: 20051201
  Receipt Date: 20051128
  Transmission Date: 20060501
  Serious: Yes (Hospitalization)
  Sender: FDA-Public Use
  Company Number: 2005-11-1298

PATIENT
  Age: 79 Year
  Sex: Male

DRUGS (11)
  1. CELESTENE (BETAMETHASONE)TABLETS  ^LIKE CELESTONE ORAL SOLUTION^ [Suspect]
     Indication: CHRONIC OBSTRUCTIVE PULMONARY DISEASE
     Dosage: 4 MG QD ORAL
     Route: 048
     Dates: start: 20051116, end: 20051120
  2. LANZOR [Concomitant]
  3. OMEPRAZOLE [Concomitant]
  4. TERSIGAT [Concomitant]
  5. EUPHYLLIN [Concomitant]
  6. SERECOR [Concomitant]
  7. TRANDOLAPRIL [Concomitant]
  8. DOXAZOSIN [Concomitant]
  9. SERETIDE (SALMETEROL XINAFOATE/FLUTICASONE PROPIONATE) [Concomitant]
  10. VENTOLIN [Concomitant]
  11. ATROVENT [Concomitant]

REACTIONS (4)
  - GASTRITIS [None]
  - HIATUS HERNIA [None]
  - HICCUPS [None]
  - OESOPHAGITIS [None]
